FAERS Safety Report 20480069 (Version 1)
Quarter: 2022Q1

REPORT INFORMATION
  Report Type: Spontaneous
  Country: US (occurrence: None)
  Receive Date: 20220216
  Receipt Date: 20220216
  Transmission Date: 20220423
  Serious: Yes (Other)
  Sender: FDA-Public Use
  Company Number: 2022A064799

PATIENT
  Age: 38 Year
  Sex: Male
  Weight: 74.4 kg

DRUGS (1)
  1. EVUSHELD [Suspect]
     Active Substance: CILGAVIMAB\TIXAGEVIMAB
     Indication: Antiviral prophylaxis
     Dosage: 300.0MG ONCE/SINGLE ADMINISTRATION
     Route: 030
     Dates: start: 20220114, end: 20220114

REACTIONS (1)
  - Kidney transplant rejection [Recovering/Resolving]

NARRATIVE: CASE EVENT DATE: 20220121
